FAERS Safety Report 9171623 (Version 1)
Quarter: 2013Q1

REPORT INFORMATION
  Report Type: Report from Study
  Country: US (occurrence: US)
  Receive Date: 20130319
  Receipt Date: 20130319
  Transmission Date: 20140127
  Serious: Yes (Other)
  Sender: FDA-Public Use
  Company Number: US-009507513-1303USA007304

PATIENT
  Age: 41 Year
  Sex: Male
  Weight: 101.6 kg

DRUGS (3)
  1. PEGINTRON [Suspect]
     Indication: HEPATITIS C
     Dosage: 150 MICROGRAM, QW
     Route: 058
     Dates: start: 20121119
  2. REBETOL [Suspect]
     Indication: HEPATITIS C
     Dosage: 1000 MG ONCE DAILY
     Route: 048
     Dates: start: 20121119
  3. CITALOPRAM [Concomitant]
     Indication: DEPRESSION
     Dosage: UNK, QD
     Route: 048
     Dates: start: 20120101, end: 20130301

REACTIONS (1)
  - Depression [Recovered/Resolved with Sequelae]
